FAERS Safety Report 4631416-6 (Version None)
Quarter: 2005Q2

REPORT INFORMATION
  Report Type: 
  Country: None (occurrence: None)
  Receive Date: 20050407
  Receipt Date: 20050329
  Transmission Date: 20051028
  Serious: Yes (Hospitalization)
  Sender: FDA-Public Use
  Company Number: TPA2005A00358

PATIENT
  Age: 60 Year
  Sex: Female

DRUGS (9)
  1. ACTOS [Suspect]
     Indication: DIABETES MELLITUS
     Dosage: PER ORAL
     Route: 048
  2. GLIPIZIDE [Suspect]
  3. ACETAMINOPHEN [Concomitant]
  4. DIGOXIN [Concomitant]
  5. DILTIAZEM [Concomitant]
  6. HYDROCHLOROTHIAZIDE [Concomitant]
  7. IRBESARTAN [Concomitant]
  8. METFORMIN HCL [Concomitant]
  9. WARFARIN SODIUM [Concomitant]

REACTIONS (10)
  - ASTHENIA [None]
  - ATRIOVENTRICULAR BLOCK FIRST DEGREE [None]
  - DIZZINESS [None]
  - ELECTROCARDIOGRAM QT CORRECTED INTERVAL SHORTENED [None]
  - ELECTROCARDIOGRAM ST SEGMENT ELEVATION [None]
  - GAIT DISTURBANCE [None]
  - HYPERHIDROSIS [None]
  - HYPOGLYCAEMIA [None]
  - NAUSEA [None]
  - OEDEMA PERIPHERAL [None]
